FAERS Safety Report 5218723-3 (Version None)
Quarter: 2007Q1

REPORT INFORMATION
  Report Type: 
  Country: None (occurrence: None)
  Receive Date: 20070122
  Receipt Date: 20070115
  Transmission Date: 20070707
  Serious: No
  Sender: FDA-Public Use
  Company Number: 149830USA

PATIENT
  Age: 78 Year
  Sex: Female

DRUGS (4)
  1. FEXOFENADINE HYDROCHLORIDE [Suspect]
     Indication: SEASONAL ALLERGY
     Dosage: 120 MG (60 MG, 2 IN 1 D), ORAL
     Route: 048
     Dates: start: 20060301, end: 20060301
  2. ASPIRIN [Suspect]
     Dosage: 4-5 TIMES PER WEEK
     Dates: end: 20060327
  3. TRIAMCINOLONE ACETONIDE [Concomitant]
  4. OLOPATADINE HYDROCHLORIDE [Concomitant]

REACTIONS (3)
  - HALLUCINATION, AUDITORY [None]
  - NERVE INJURY [None]
  - TINNITUS [None]
